FAERS Safety Report 5013602-9 (Version None)
Quarter: 2006Q2

REPORT INFORMATION
  Report Type: 
  Country: None (occurrence: None)
  Receive Date: 20060530
  Receipt Date: 20060523
  Transmission Date: 20061013
  Serious: Yes (Other)
  Sender: FDA-Public Use
  Company Number: US-GLAXOSMITHKLINE-A0606655A

PATIENT
  Age: 63 Year
  Sex: Female

DRUGS (9)
  1. LAMICTAL [Suspect]
     Indication: BIPOLAR DISORDER
     Dosage: 25MG ALTERNATE DAYS
     Route: 048
     Dates: start: 20060514
  2. ACIPHEX [Concomitant]
  3. ZYRTEC [Concomitant]
  4. NASONEX [Concomitant]
  5. PULMICORT [Concomitant]
  6. NEURONTIN [Concomitant]
  7. ASTELIN [Concomitant]
  8. HORMONE REPLACEMENT THERAPY [Concomitant]
  9. LORAZEPAM [Concomitant]

REACTIONS (8)
  - DISTURBANCE IN ATTENTION [None]
  - ERYTHEMA [None]
  - FLUSHING [None]
  - NEUROPATHY [None]
  - POOR QUALITY DRUG ADMINISTERED [None]
  - PSYCHOSOMATIC DISEASE [None]
  - SLEEP DISORDER [None]
  - TINNITUS [None]
